FAERS Safety Report 8048822-2 (Version None)
Quarter: 2012Q1

REPORT INFORMATION
  Report Type: 
  Country: None (occurrence: None)
  Receive Date: 20120117
  Receipt Date: 20120109
  Transmission Date: 20120608
  Serious: Yes (Other)
  Sender: FDA-Public Use
  Company Number: US-UCBSA-049371

PATIENT
  Age: 23 Year
  Sex: Female

DRUGS (2)
  1. KEPPRA [Suspect]
     Indication: EPILEPSY
     Dosage: DOSE: 1000
     Dates: start: 20050704
  2. KEPPRA [Suspect]
     Dosage: DOSE: 1500
     Dates: end: 20050703

REACTIONS (2)
  - ABORTION INDUCED [None]
  - PREGNANCY [None]
